FAERS Safety Report 9128403 (Version 1)
Quarter: 2013Q1

REPORT INFORMATION
  Report Type: Spontaneous
  Country: AE (occurrence: AE)
  Receive Date: 20130228
  Receipt Date: 20130228
  Transmission Date: 20140127
  Serious: Yes (Death)
  Sender: FDA-Public Use
  Company Number: AE-ABBOTT-13P-166-1054764-00

PATIENT
  Sex: Male

DRUGS (3)
  1. HUMIRA [Suspect]
     Indication: PSORIATIC ARTHROPATHY
     Route: 058
  2. ANTI HYPERTENSIVE MEDICATION [Concomitant]
     Indication: HYPERTENSION
  3. ANTI DIABETIC MEDICATION [Concomitant]
     Indication: DIABETES MELLITUS

REACTIONS (1)
  - Cardiac arrest [Fatal]
